FAERS Safety Report 11641844 (Version 3)
Quarter: 2015Q4

REPORT INFORMATION
  Report Type: Spontaneous
  Country: IE (occurrence: IE)
  Receive Date: 20151019
  Receipt Date: 20151203
  Transmission Date: 20160304
  Serious: Yes (Hospitalization, Disabling, Other)
  Sender: FDA-Public Use
  Company Number: IE-JNJFOC-20151013580

PATIENT
  Age: 80 Year
  Sex: Male

DRUGS (9)
  1. HYOSCINE BUTYLBROMIDE [Concomitant]
     Active Substance: BUTYLSCOPOLAMINE
     Route: 065
  2. LEVOMEPROMAZINE [Concomitant]
     Active Substance: LEVOMEPROMAZINE
     Route: 048
     Dates: start: 20150905
  3. XARELTO [Suspect]
     Active Substance: RIVAROXABAN
     Indication: EMBOLISM VENOUS
     Route: 048
     Dates: start: 20151002
  4. ESOMEPRAZOLE [Concomitant]
     Active Substance: ESOMEPRAZOLE
     Route: 048
  5. PHENYTOIN. [Concomitant]
     Active Substance: PHENYTOIN
     Route: 048
  6. SENNA [Concomitant]
     Active Substance: SENNA LEAF\SENNOSIDES\SENNOSIDES A AND B
     Route: 048
  7. XARELTO [Suspect]
     Active Substance: RIVAROXABAN
     Indication: DEEP VEIN THROMBOSIS
     Route: 048
     Dates: start: 20151002
  8. TRIAZOLAM. [Concomitant]
     Active Substance: TRIAZOLAM
     Route: 048
  9. XALATAN [Concomitant]
     Active Substance: LATANOPROST
     Route: 065

REACTIONS (9)
  - Dysarthria [Recovered/Resolved]
  - Confusional state [Recovered/Resolved]
  - Balance disorder [Recovered/Resolved]
  - Ataxia [Recovered/Resolved]
  - Metastasis [Unknown]
  - Intentional product use issue [Unknown]
  - Dizziness [Recovered/Resolved]
  - Off label use [Unknown]
  - Coordination abnormal [Recovered/Resolved]

NARRATIVE: CASE EVENT DATE: 201510
